FAERS Safety Report 23300589 (Version 1)
Quarter: 2023Q4

REPORT INFORMATION
  Report Type: Spontaneous
  Country: LT (occurrence: LT)
  Receive Date: 20231215
  Receipt Date: 20231215
  Transmission Date: 20240110
  Serious: Yes (Other)
  Sender: FDA-Public Use
  Company Number: LT-BRISTOL-MYERS SQUIBB COMPANY-2023-180606

PATIENT
  Age: 62 Year
  Sex: Male

DRUGS (2)
  1. NIVOLUMAB [Suspect]
     Active Substance: NIVOLUMAB
     Indication: Renal cancer
     Dates: start: 20230131, end: 20230404
  2. IPILIMUMAB [Suspect]
     Active Substance: IPILIMUMAB
     Indication: Renal cancer
     Dates: start: 20230131, end: 20230404

REACTIONS (2)
  - Skin toxicity [Recovered/Resolved]
  - Hepatotoxicity [Recovered/Resolved]
